FAERS Safety Report 18251382 (Version 20)
Quarter: 2022Q4

REPORT INFORMATION
  Report Type: Report from Study
  Country: JP (occurrence: JP)
  Receive Date: 20200910
  Receipt Date: 20221005
  Transmission Date: 20230112
  Serious: Yes (Death, Hospitalization, Disabling)
  Sender: FDA-Public Use
  Company Number: NVSJ2020JP007817

PATIENT
  Sex: Female
  Weight: 48.4 kg

DRUGS (15)
  1. KYMRIAH [Suspect]
     Active Substance: TISAGENLECLEUCEL
     Indication: Acute lymphocytic leukaemia recurrent
     Dosage: FULL DOSE, 12X10^8
     Route: 041
     Dates: start: 20200713
  2. CYCLOSPORINE [Suspect]
     Active Substance: CYCLOSPORINE
     Indication: Product used for unknown indication
     Dosage: UNK
     Route: 065
     Dates: start: 202011
  3. CYCLOPHOSPHAMIDE [Suspect]
     Active Substance: CYCLOPHOSPHAMIDE
     Indication: Chemotherapy
     Dosage: 90 MG/M2
     Route: 041
     Dates: start: 20200707
  4. CYCLOPHOSPHAMIDE [Suspect]
     Active Substance: CYCLOPHOSPHAMIDE
     Indication: Graft versus host disease
     Dosage: 500 MG/M2, QD, 2DAYS
     Route: 041
     Dates: start: 20201026
  5. CYCLOPHOSPHAMIDE [Suspect]
     Active Substance: CYCLOPHOSPHAMIDE
     Dosage: UNK
     Route: 065
     Dates: start: 202010
  6. FLUDARABINE PHOSPHATE [Concomitant]
     Active Substance: FLUDARABINE PHOSPHATE
     Indication: Chemotherapy
     Dosage: 1000 MG/M2, QD, 4DAYS
     Route: 041
     Dates: start: 20200707
  7. PREDNISOLONE [Concomitant]
     Active Substance: PREDNISOLONE
     Indication: Chronic graft versus host disease
     Dosage: 2.5 MG
     Route: 065
     Dates: start: 20200918
  8. PREDNISOLONE [Concomitant]
     Active Substance: PREDNISOLONE
     Indication: Immune effector cell-associated neurotoxicity syndrome
     Dosage: 80 MG
     Route: 065
     Dates: start: 20200918
  9. PREDNISOLONE [Concomitant]
     Active Substance: PREDNISOLONE
     Indication: Quadriplegia
     Dosage: 40 MG
     Route: 065
     Dates: start: 202009
  10. PREDNISOLONE [Concomitant]
     Active Substance: PREDNISOLONE
     Indication: Hemiplegia
     Dosage: 30 MG
     Route: 065
     Dates: start: 202009
  11. PREDNISOLONE [Concomitant]
     Active Substance: PREDNISOLONE
     Dosage: 0.5 MG/KG
     Route: 065
  12. PREDNISOLONE [Concomitant]
     Active Substance: PREDNISOLONE
     Dosage: 60 MG
     Route: 065
     Dates: start: 20201016
  13. DEXAMETHASONE [Concomitant]
     Active Substance: DEXAMETHASONE
     Indication: Product used for unknown indication
     Dosage: UNK
     Route: 065
     Dates: start: 202010
  14. METHOTREXATE [Concomitant]
     Active Substance: METHOTREXATE
     Indication: Product used for unknown indication
     Dosage: UNK
     Route: 016
     Dates: start: 202010
  15. TACROLIMUS [Concomitant]
     Active Substance: TACROLIMUS
     Indication: Product used for unknown indication
     Dosage: 6-7
     Route: 065
     Dates: start: 202010

REACTIONS (27)
  - Immune effector cell-associated neurotoxicity syndrome [Fatal]
  - Noninfective encephalitis [Fatal]
  - Quadriplegia [Fatal]
  - Epilepsy [Fatal]
  - Depressed level of consciousness [Fatal]
  - Hemiplegia [Fatal]
  - Cerebral atrophy [Fatal]
  - White matter lesion [Fatal]
  - Angiopathy [Fatal]
  - Dyskinesia [Fatal]
  - Disorientation [Fatal]
  - Aphasia [Fatal]
  - Seizure [Fatal]
  - Somnolence [Fatal]
  - Dyslalia [Fatal]
  - Graft versus host disease [Fatal]
  - Hypoxia [Fatal]
  - Dyspnoea [Fatal]
  - Cytokine release syndrome [Recovered/Resolved]
  - Pyrexia [Recovered/Resolved]
  - Erythema [Recovering/Resolving]
  - Pancytopenia [Recovering/Resolving]
  - Febrile neutropenia [Recovered/Resolved]
  - Viral infection [Unknown]
  - Hypoxia [Recovered/Resolved]
  - Pyrexia [Recovered/Resolved]
  - Back pain [Unknown]

NARRATIVE: CASE EVENT DATE: 20200101
